FAERS Safety Report 9349425 (Version 3)
Quarter: 2013Q3

REPORT INFORMATION
  Report Type: Report from Study
  Country: GB (occurrence: GB)
  Receive Date: 20130614
  Receipt Date: 20130722
  Transmission Date: 20140515
  Serious: Yes (Hospitalization)
  Sender: FDA-Public Use
  Company Number: GB-BAXTER-2013BAX021378

PATIENT
  Age: 68 Year
  Sex: Female
  Weight: 62.4 kg

DRUGS (29)
  1. CYCLOPHOSPHAMIDE INJECTION 200MG [Suspect]
     Indication: DIFFUSE LARGE B-CELL LYMPHOMA
     Route: 042
     Dates: start: 20130319
  2. CYCLOPHOSPHAMIDE INJECTION 200MG [Suspect]
     Route: 042
     Dates: start: 20130320
  3. CYCLOPHOSPHAMIDE INJECTION 200MG [Suspect]
     Route: 042
     Dates: start: 20130503
  4. DOXORUBICIN HYDROCHLORIDE [Suspect]
     Indication: DIFFUSE LARGE B-CELL LYMPHOMA
     Route: 042
     Dates: start: 20130319
  5. DOXORUBICIN HYDROCHLORIDE [Suspect]
     Route: 042
     Dates: start: 20130503
  6. DOXORUBICIN HYDROCHLORIDE [Suspect]
     Route: 042
     Dates: start: 20130320
  7. RITUXIMAB [Suspect]
     Indication: DIFFUSE LARGE B-CELL LYMPHOMA
     Route: 042
     Dates: start: 20130319
  8. RITUXIMAB [Suspect]
     Route: 042
     Dates: start: 20130503
  9. VINCRISTINE SULFATE [Suspect]
     Indication: DIFFUSE LARGE B-CELL LYMPHOMA
     Route: 042
     Dates: start: 20130319
  10. VINCRISTINE SULFATE [Suspect]
     Route: 042
     Dates: start: 20130503
  11. VINCRISTINE SULFATE [Suspect]
     Route: 042
     Dates: start: 20130320
  12. PREDNISONE [Suspect]
     Indication: DIFFUSE LARGE B-CELL LYMPHOMA
     Route: 048
     Dates: start: 20130319
  13. PREDNISONE [Suspect]
     Route: 048
     Dates: start: 20130323
  14. PREDNISONE [Suspect]
     Route: 048
     Dates: start: 20130506
  15. ACICLOVIR [Concomitant]
     Indication: HERPES SIMPLEX
     Route: 065
     Dates: start: 20130412
  16. ALLOPURINOL [Concomitant]
     Indication: GOUT
     Route: 065
     Dates: start: 20130311
  17. CHLORPHENAMINE MALEATE [Concomitant]
     Indication: PRURITUS
     Route: 065
     Dates: start: 20130309
  18. CYCLIZINE [Concomitant]
     Indication: NAUSEA
     Route: 065
     Dates: start: 20130310
  19. DALTEPARIN SODIUM [Concomitant]
     Indication: ANTICOAGULANT THERAPY
     Route: 065
     Dates: start: 20130309
  20. DEXAMETHASONE [Concomitant]
     Indication: PRODUCT USED FOR UNKNOWN INDICATION
     Route: 065
     Dates: start: 20130412, end: 20130412
  21. DOMPERIDONE [Concomitant]
     Indication: NAUSEA
     Route: 065
     Dates: start: 20130319
  22. HYDROCORTISONE [Concomitant]
     Indication: PYREXIA
     Route: 065
     Dates: start: 20130319, end: 20130319
  23. HYDROXYZINE HYDROCHLORIDE [Concomitant]
     Indication: PRURITUS
     Route: 065
     Dates: start: 20130402
  24. MEBEVERINE HYDROCHLORIDE [Concomitant]
     Indication: ABDOMINAL PAIN
     Route: 065
  25. OMEPRAZOLE [Concomitant]
     Indication: GASTROOESOPHAGEAL REFLUX DISEASE
     Route: 065
     Dates: start: 20130310
  26. ONDANSETRON [Concomitant]
     Indication: NAUSEA
     Route: 065
     Dates: start: 20130319, end: 20130319
  27. PARACETAMOL [Concomitant]
     Indication: PYREXIA
     Route: 065
     Dates: start: 20130310
  28. PREDNISOLONE [Concomitant]
     Indication: PRODUCT USED FOR UNKNOWN INDICATION
     Route: 065
     Dates: start: 20130313
  29. TRAMADOL [Concomitant]
     Indication: PAIN
     Route: 065
     Dates: start: 20130314

REACTIONS (2)
  - Neutropenic sepsis [Recovered/Resolved]
  - Neutropenic sepsis [Recovered/Resolved]
